FAERS Safety Report 4539476-8 (Version None)
Quarter: 2004Q4

REPORT INFORMATION
  Report Type: 
  Country: None (occurrence: None)
  Receive Date: 20041228
  Receipt Date: 20041217
  Transmission Date: 20050328
  Serious: Yes (Death, Other)
  Sender: FDA-Public Use
  Company Number: 200419673US

PATIENT
  Sex: Female

DRUGS (1)
  1. LOVENOX [Suspect]
     Dosage: DOSE: NOT PROVIDED

REACTIONS (3)
  - FALL [None]
  - HAEMORRHAGE INTRACRANIAL [None]
  - HEAD INJURY [None]
